FAERS Safety Report 20674554 (Version 1)
Quarter: 2022Q2

REPORT INFORMATION
  Report Type: Report from Study
  Country: BR (occurrence: BR)
  Receive Date: 20220405
  Receipt Date: 20220405
  Transmission Date: 20220721
  Serious: Yes (Hospitalization)
  Sender: FDA-Public Use
  Company Number: BR-NOVARTISPH-NVSC2021BR205745

PATIENT
  Sex: Female

DRUGS (4)
  1. COSENTYX [Suspect]
     Active Substance: SECUKINUMAB
     Indication: Psoriasis
     Dosage: 300 MG, UNKNOWN (ATTACK DOSE) (STARTED BETWEEN JAN 2020 AND FEB 2020)
     Route: 065
  2. COSENTYX [Suspect]
     Active Substance: SECUKINUMAB
     Indication: Osteoarthritis
     Dosage: 300 MG, UNKNOWN (MAINTENANCE DOSE)
     Route: 065
     Dates: start: 20200607
  3. COSENTYX [Suspect]
     Active Substance: SECUKINUMAB
     Dosage: UNK
     Route: 065
     Dates: start: 20210805
  4. COSENTYX [Suspect]
     Active Substance: SECUKINUMAB
     Dosage: UNK, UNKNOWN
     Route: 065
     Dates: start: 20220210

REACTIONS (22)
  - Inflammation [Recovered/Resolved]
  - Syncope [Recovered/Resolved]
  - Malaise [Recovered/Resolved]
  - Illness [Unknown]
  - Decreased immune responsiveness [Not Recovered/Not Resolved]
  - Inflammation [Recovered/Resolved]
  - Oropharyngeal discomfort [Unknown]
  - Influenza [Recovered/Resolved with Sequelae]
  - Oropharyngeal pain [Not Recovered/Not Resolved]
  - Rhinorrhoea [Recovering/Resolving]
  - Sneezing [Recovering/Resolving]
  - Headache [Recovered/Resolved]
  - Headache [Recovering/Resolving]
  - Asthenia [Recovered/Resolved]
  - Pyrexia [Recovered/Resolved]
  - Pain [Recovered/Resolved]
  - Anosmia [Recovered/Resolved]
  - Dysphonia [Recovering/Resolving]
  - SARS-CoV-2 test positive [Recovered/Resolved with Sequelae]
  - Fatigue [Recovered/Resolved]
  - Alopecia [Not Recovered/Not Resolved]
  - Product use in unapproved indication [Unknown]

NARRATIVE: CASE EVENT DATE: 20200101
